FAERS Safety Report 6858208-1 (Version None)
Quarter: 2010Q3

REPORT INFORMATION
  Report Type: 
  Country: None (occurrence: None)
  Receive Date: 20100719
  Receipt Date: 20080202
  Transmission Date: 20110219
  Serious: No
  Sender: FDA-Public Use
  Company Number: US-PFIZER INC-2008011796

PATIENT
  Sex: Female
  Weight: 52.272 kg

DRUGS (6)
  1. CHANTIX [Suspect]
     Indication: SMOKING CESSATION THERAPY
     Route: 048
     Dates: start: 20080201
  2. ADDERALL 10 [Concomitant]
     Indication: ATTENTION DEFICIT/HYPERACTIVITY DISORDER
  3. TRILEPTAL [Concomitant]
  4. LAMICTAL [Concomitant]
  5. LEXAPRO [Concomitant]
  6. KLONOPIN [Concomitant]

REACTIONS (1)
  - ANXIETY [None]
